FAERS Safety Report 21527802 (Version 1)
Quarter: 2022Q4

REPORT INFORMATION
  Report Type: Spontaneous
  Country: US (occurrence: US)
  Receive Date: 20221031
  Receipt Date: 20221031
  Transmission Date: 20230113
  Serious: No
  Sender: FDA-Public Use
  Company Number: US-LEO Pharma-345293

PATIENT
  Age: 73 Year
  Sex: Female

DRUGS (1)
  1. FINACEA [Suspect]
     Active Substance: AZELAIC ACID
     Indication: Rosacea
     Dosage: STARTED - PARTIAL : 2-3 YEARS AGO

REACTIONS (2)
  - Acne [Unknown]
  - Drug ineffective [Unknown]
